FAERS Safety Report 4331914-9 (Version None)
Quarter: 2004Q2

REPORT INFORMATION
  Report Type: 
  Country: None (occurrence: None)
  Receive Date: 20040405
  Receipt Date: 20030319
  Transmission Date: 20050107
  Serious: No
  Sender: FDA-Public Use
  Company Number: US-GLAXOSMITHKLINE-A0401035A

PATIENT
  Age: 50 Year
  Sex: Female

DRUGS (4)
  1. SEREVENT [Suspect]
     Indication: ASTHMA
     Route: 055
     Dates: start: 20020101
  2. CORTISONE [Concomitant]
     Route: 055
  3. FLOVENT [Concomitant]
     Route: 055
  4. LOPRESSOR [Concomitant]
     Route: 048

REACTIONS (3)
  - ARTHRALGIA [None]
  - PALPITATIONS [None]
  - TACHYCARDIA [None]
